FAERS Safety Report 6548286-1 (Version None)
Quarter: 2010Q1

REPORT INFORMATION
  Report Type: 
  Country: None (occurrence: None)
  Receive Date: 20100124
  Receipt Date: 20090414
  Transmission Date: 20100710
  Serious: No
  Sender: FDA-Public Use
  Company Number: US-ALLERGAN-0905027US

PATIENT
  Sex: Female

DRUGS (2)
  1. RESTASIS [Suspect]
     Indication: POSTOPERATIVE CARE
     Dosage: UNK, UNKNOWN
     Route: 047
     Dates: start: 20090407
  2. RESTASIS [Suspect]
     Indication: VISION BLURRED

REACTIONS (4)
  - ERYTHEMA OF EYELID [None]
  - EYELID OEDEMA [None]
  - PRURITUS [None]
  - RASH ERYTHEMATOUS [None]
